FAERS Safety Report 6817568-8 (Version None)
Quarter: 2010Q3

REPORT INFORMATION
  Report Type: 
  Country: None (occurrence: None)
  Receive Date: 20100706
  Receipt Date: 20100623
  Transmission Date: 20110219
  Serious: Yes (Hospitalization)
  Sender: FDA-Public Use
  Company Number: FR-ELI_LILLY_AND_COMPANY-FR201006006471

PATIENT
  Sex: Male
  Weight: 75 kg

DRUGS (8)
  1. TADALAFIL [Suspect]
     Indication: PULMONARY ARTERIAL HYPERTENSION
     Dosage: UNK, DAILY (1/D)
     Route: 048
     Dates: start: 20061218, end: 20100311
  2. NEXIUM [Concomitant]
     Indication: GASTROOESOPHAGEAL REFLUX DISEASE
     Dates: start: 20061120
  3. PREVISCAN [Concomitant]
     Indication: PULMONARY ARTERIAL HYPERTENSION
     Dates: start: 20050511
  4. BUFLOMEDIL [Concomitant]
     Dates: start: 20071210
  5. ATARAX [Concomitant]
     Indication: INSOMNIA
     Dates: start: 20030205
  6. FUROSEMIDE [Concomitant]
     Indication: PULMONARY ARTERIAL HYPERTENSION
     Dates: start: 20021210
  7. SPIRONOLACTONE [Concomitant]
     Indication: PULMONARY ARTERIAL HYPERTENSION
     Dates: start: 20100301
  8. DIFFU K [Concomitant]
     Indication: HYPOKALAEMIA
     Dates: start: 20070221

REACTIONS (2)
  - ARRHYTHMIA [None]
  - TACHYCARDIA [None]
